FAERS Safety Report 18344556 (Version 1)
Quarter: 2020Q4

REPORT INFORMATION
  Report Type: Spontaneous
  Country: US (occurrence: US)
  Receive Date: 20201005
  Receipt Date: 20201005
  Transmission Date: 20210114
  Serious: Yes (Death)
  Sender: FDA-Public Use
  Company Number: None

PATIENT
  Age: 58 Year
  Sex: Male
  Weight: 77.11 kg

DRUGS (9)
  1. ABIRATERONE ACETATE. [Suspect]
     Active Substance: ABIRATERONE ACETATE
     Indication: PROSTATE CANCER
     Route: 048
     Dates: start: 20200401, end: 20201005
  2. POTASSIUM CHLORIDE CRYS ER [Concomitant]
     Active Substance: POTASSIUM CHLORIDE
  3. CYCLOBENZAPRINE HCL [Concomitant]
     Active Substance: CYCLOBENZAPRINE HYDROCHLORIDE
  4. PREDNISONE. [Suspect]
     Active Substance: PREDNISONE
     Indication: SUPPORTIVE CARE
     Route: 048
     Dates: start: 20200401, end: 20201005
  5. TAMSULOSIN HCL [Concomitant]
     Active Substance: TAMSULOSIN HYDROCHLORIDE
  6. XGEVA [Concomitant]
     Active Substance: DENOSUMAB
  7. TRELSTAR 22.5 MG SYRINGE [Concomitant]
  8. ALPRAZOLAM. [Concomitant]
     Active Substance: ALPRAZOLAM
  9. IBUPROFEN. [Concomitant]
     Active Substance: IBUPROFEN

REACTIONS (1)
  - Death [None]

NARRATIVE: CASE EVENT DATE: 20201005
